FAERS Safety Report 21120098 (Version 1)
Quarter: 2022Q3

REPORT INFORMATION
  Report Type: Spontaneous
  Country: FR (occurrence: FR)
  Receive Date: 20220722
  Receipt Date: 20220722
  Transmission Date: 20221027
  Serious: Yes (Congenital Anomaly)
  Sender: FDA-Public Use
  Company Number: None

PATIENT

DRUGS (1)
  1. GILENYA [Suspect]
     Active Substance: FINGOLIMOD HYDROCHLORIDE
     Indication: Foetal exposure during pregnancy
     Dosage: PATERNAL DOSE: UNKNOWN
     Route: 050

REACTIONS (3)
  - Hygroma colli [Unknown]
  - Pleural effusion [Unknown]
  - Exposure via father [Unknown]

NARRATIVE: CASE EVENT DATE: 20141001
